FAERS Safety Report 9632544 (Version 1)
Quarter: 2013Q4

REPORT INFORMATION
  Report Type: Spontaneous
  Country: US (occurrence: US)
  Receive Date: 20131018
  Receipt Date: 20131018
  Transmission Date: 20140711
  Serious: Yes (Other)
  Sender: FDA-Public Use
  Company Number: US-BAYER-2013-125229

PATIENT
  Age: 61 Year
  Sex: Female

DRUGS (2)
  1. RID 1-2-3 SYSTEM [Suspect]
     Dosage: UNK
     Dates: start: 20131006
  2. RID SHAMPOO [Suspect]
     Dosage: UNK
     Dates: start: 20131004

REACTIONS (6)
  - Eye infection [None]
  - Drug administered at inappropriate site [None]
  - Off label use [None]
  - Inappropriate schedule of drug administration [None]
  - Pruritus [Not Recovered/Not Resolved]
  - Dyspnoea [Recovered/Resolved]
